FAERS Safety Report 9201920 (Version 3)
Quarter: 2013Q2

REPORT INFORMATION
  Report Type: Report from Study
  Country: AT (occurrence: AT)
  Receive Date: 20130401
  Receipt Date: 20130430
  Transmission Date: 20140414
  Serious: Yes (Other)
  Sender: FDA-Public Use
  Company Number: AT-ROCHE-1208472

PATIENT
  Sex: Female
  Weight: 60 kg

DRUGS (22)
  1. RITUXIMAB [Suspect]
     Indication: RHEUMATOID ARTHRITIS
     Route: 042
     Dates: start: 20080625
  2. SALICYLAZOSULFAPYRIDINE [Concomitant]
     Route: 065
  3. MEXALEN [Concomitant]
     Route: 065
     Dates: start: 20080625
  4. MEXALEN [Concomitant]
     Route: 065
     Dates: start: 20080721
  5. VOLTAREN [Concomitant]
     Route: 065
     Dates: start: 20080625
  6. VOLTAREN [Concomitant]
     Route: 065
     Dates: start: 20080721
  7. VOLTAREN [Concomitant]
     Route: 065
     Dates: start: 20081128
  8. VOLTAREN [Concomitant]
     Route: 065
     Dates: start: 20090417
  9. HYDRAL [Concomitant]
     Route: 065
     Dates: start: 20080625
  10. HYDRAL [Concomitant]
     Route: 065
     Dates: start: 20080721
  11. HYDRAL [Concomitant]
     Route: 065
     Dates: start: 20081128
  12. FENISTIL [Concomitant]
     Route: 065
     Dates: start: 20080625
  13. ZYRTEC [Concomitant]
     Route: 065
     Dates: start: 20080721
  14. SOLU-DACORTINE [Concomitant]
     Route: 065
     Dates: start: 20080625
  15. SOLU-DACORTINE [Concomitant]
     Route: 065
     Dates: start: 20080721
  16. EBETREXAT [Concomitant]
     Route: 065
     Dates: start: 20080625
  17. EBETREXAT [Concomitant]
     Route: 065
     Dates: start: 20080721, end: 200807
  18. APREDNISLON [Concomitant]
     Route: 065
     Dates: start: 20080625
  19. APREDNISLON [Concomitant]
     Route: 065
     Dates: start: 20080721
  20. APREDNISLON [Concomitant]
     Route: 065
     Dates: start: 20081128
  21. SANDIMMUN [Concomitant]
     Route: 065
  22. ARAVA [Concomitant]
     Route: 065

REACTIONS (1)
  - Glioblastoma [Unknown]
